FAERS Safety Report 24437290 (Version 1)
Quarter: 2024Q4

REPORT INFORMATION
  Report Type: Spontaneous
  Country: US (occurrence: None)
  Receive Date: 20241011
  Receipt Date: 20241011
  Transmission Date: 20250115
  Serious: Yes (Hospitalization)
  Sender: Public
  Company Number: None

PATIENT
  Sex: Female

DRUGS (1)
  1. INFLIXIMAB [Suspect]
     Active Substance: INFLIXIMAB
     Indication: Inflammatory bowel disease
     Dosage: OTHER FREQUENCY : WEEK 2 + 6;?
     Route: 042
     Dates: start: 202408

REACTIONS (3)
  - Peripheral swelling [None]
  - Burning sensation [None]
  - Menstruation irregular [None]
